FAERS Safety Report 26141888 (Version 1)
Quarter: 2025Q4

REPORT INFORMATION
  Report Type: Spontaneous
  Country: EU (occurrence: EU)
  Receive Date: 20251210
  Receipt Date: 20251210
  Transmission Date: 20260118
  Serious: Yes (Hospitalization)
  Sender: ELI LILLY AND COMPANY
  Company Number: None

PATIENT
  Age: 62 Year
  Sex: Female
  Weight: 93 kg

DRUGS (8)
  1. DULOXETINE HYDROCHLORIDE [Suspect]
     Active Substance: DULOXETINE HYDROCHLORIDE
     Indication: Neuropathy peripheral
     Dosage: 30 MG, DAILY
     Route: 048
     Dates: start: 20251029, end: 20251117
  2. MEROPENEM [Suspect]
     Active Substance: MEROPENEM
     Indication: Staphylococcal bacteraemia
     Dosage: 2 G, EVERY 8 HRS
     Route: 042
     Dates: start: 20251020, end: 20251117
  3. OMNIPAQUE [Suspect]
     Active Substance: IOHEXOL
     Indication: Computerised tomogram
     Dosage: UNK UNK, UNKNOWN
     Route: 042
     Dates: start: 20251016, end: 20251016
  4. OMNIPAQUE [Suspect]
     Active Substance: IOHEXOL
     Dosage: UNK UNK, UNKNOWN
     Route: 042
     Dates: start: 20251114, end: 20251114
  5. CEFEPIME [Concomitant]
     Active Substance: CEFEPIME HYDROCHLORIDE
     Indication: Staphylococcal bacteraemia
     Dosage: 2 G, EVERY 8 HRS
     Route: 042
     Dates: start: 20251018, end: 20251020
  6. CIPROFLOXACIN [Concomitant]
     Active Substance: CIPROFLOXACIN
     Indication: Staphylococcal bacteraemia
     Dosage: 1500 MG, DAILY
     Route: 048
     Dates: start: 20251030, end: 20251103
  7. DAPTOMYCIN [Concomitant]
     Active Substance: DAPTOMYCIN
     Indication: Staphylococcal bacteraemia
     Dosage: UNK UNK, UNKNOWN
     Route: 042
     Dates: start: 20251018, end: 20251030
  8. PREGABALIN [Concomitant]
     Active Substance: PREGABALIN
     Indication: Neuropathy peripheral
     Dosage: 600 MG, DAILY
     Route: 048
     Dates: start: 20251029, end: 20251103

REACTIONS (2)
  - Eosinophilia [Not Recovered/Not Resolved]
  - Rash pruritic [Not Recovered/Not Resolved]

NARRATIVE: CASE EVENT DATE: 20251108
